FAERS Safety Report 6956903-7 (Version None)
Quarter: 2010Q3

REPORT INFORMATION
  Report Type: 
  Country: None (occurrence: None)
  Receive Date: 20100830
  Receipt Date: 20100802
  Transmission Date: 20110219
  Serious: No
  Sender: FDA-Public Use
  Company Number: US-ALLERGAN-1010031US

PATIENT
  Sex: Female

DRUGS (2)
  1. SANCTURA XR [Suspect]
     Indication: HYPERTONIC BLADDER
  2. ZOLOFT [Concomitant]
     Dosage: UNK
     Dates: start: 20100719

REACTIONS (1)
  - DRY MOUTH [None]
